FAERS Safety Report 21095635 (Version 4)
Quarter: 2023Q4

REPORT INFORMATION
  Report Type: Spontaneous
  Country: US (occurrence: US)
  Receive Date: 20220718
  Receipt Date: 20231010
  Transmission Date: 20240109
  Serious: No
  Sender: FDA-Public Use
  Company Number: US-PFIZER INC-202200968388

PATIENT
  Age: 66 Year
  Sex: Male

DRUGS (5)
  1. INLYTA [Suspect]
     Active Substance: AXITINIB
     Dosage: 5 MG, 2X/DAY
     Route: 048
     Dates: start: 20220713
  2. LEVOTHYROXINE [Concomitant]
     Active Substance: LEVOTHYROXINE
     Dosage: UNK
  3. PEPCID [Concomitant]
     Active Substance: FAMOTIDINE
     Dosage: UNK
  4. SODIUM BICARBONATE [Concomitant]
     Active Substance: SODIUM BICARBONATE
     Dosage: UNK
  5. ZOLOFT [Concomitant]
     Active Substance: SERTRALINE HYDROCHLORIDE
     Dosage: UNK

REACTIONS (7)
  - Dysphonia [Unknown]
  - Constipation [Unknown]
  - Contusion [Unknown]
  - Pain in extremity [Unknown]
  - Gout [Recovered/Resolved]
  - Hepatic enzyme increased [Recovered/Resolved]
  - Protein total increased [Recovered/Resolved]

NARRATIVE: CASE EVENT DATE: 20220701
